FAERS Safety Report 10407720 (Version 2)
Quarter: 2015Q1

REPORT INFORMATION
  Report Type: Spontaneous
  Country: US (occurrence: None)
  Receive Date: 20140131
  Receipt Date: 20150129
  Transmission Date: 20150720
  Serious: Yes (Death, Other)
  Sender: FDA-Public Use
  Company Number: 105014U

PATIENT
  Age: 27 Year
  Sex: Female

DRUGS (72)
  1. KEPPRA [Suspect]
     Active Substance: LEVETIRACETAM
     Indication: SEIZURE
     Dosage: 1000 MG= 10 ML, 50 MG=5 ML
     Route: 042
     Dates: start: 20110710, end: 201107
  2. VANCOMYCIN (VANCOMYCIN) [Concomitant]
     Active Substance: VANCOMYCIN
  3. VOLUVEN [Concomitant]
     Active Substance: HYDROXYETHYL STARCH 130/0.4
  4. SOLU-MEDROL [Concomitant]
     Active Substance: METHYLPREDNISOLONE SODIUM SUCCINATE
  5. AMIDATE [Concomitant]
     Active Substance: ETOMIDATE
  6. PLASBUMIN-25 [Concomitant]
     Active Substance: ALBUMIN (HUMAN)
  7. MAG-OX [Concomitant]
     Active Substance: MAGNESIUM OXIDE
  8. K PHOS ORIGINAL [Concomitant]
     Active Substance: POTASSIUM PHOSPHATE, MONOBASIC
  9. NATURES TEARS [Concomitant]
     Active Substance: HYPROMELLOSE 2910 (3 MPA.S)
  10. SODIUM CHLORIDE (UNKNOWN) [Concomitant]
     Active Substance: SODIUM CHLORIDE
  11. MAGNESIUM SULFATE. [Concomitant]
     Active Substance: MAGNESIUM SULFATE
  12. PLASMA-LYTE [Concomitant]
     Active Substance: ELECTROLYTES NOS
  13. ROBINUL [Concomitant]
     Active Substance: GLYCOPYRROLATE
  14. ZYVOX [Concomitant]
     Active Substance: LINEZOLID
  15. HUMULIN R [Concomitant]
     Active Substance: INSULIN HUMAN
  16. INVANZ [Concomitant]
     Active Substance: ERTAPENEM SODIUM
  17. DIPRIVAN [Concomitant]
     Active Substance: PROPOFOL
  18. NEUTRA-PHOS [Concomitant]
     Active Substance: POTASSIUM PHOSPHATE, DIBASIC\POTASSIUM PHOSPHATE, MONOBASIC\SODIUM PHOSPHATE, DIBASIC\SODIUM PHOSPHATE, MONOBASIC
  19. NORMODYNE [Concomitant]
     Active Substance: LABETALOL HYDROCHLORIDE
  20. CATAPRES [Concomitant]
     Active Substance: CLONIDINE HYDROCHLORIDE
  21. DIFLUCAN [Concomitant]
     Active Substance: FLUCONAZOLE
  22. HALDOL [Concomitant]
     Active Substance: HALOPERIDOL
  23. FRAGMIN [Concomitant]
     Active Substance: DALTEPARIN SODIUM
  24. MORPHINE (MORPHINE) [Concomitant]
     Active Substance: MORPHINE
  25. MESNEX [Concomitant]
     Active Substance: MESNA
  26. GEODON [Concomitant]
     Active Substance: ZIPRASIDONE HYDROCHLORIDE\ZIPRASIDONE MESYLATE
  27. NICARDIPINE [Concomitant]
     Active Substance: NICARDIPINE
  28. PRECEDEX [Concomitant]
     Active Substance: DEXMEDETOMIDINE HYDROCHLORIDE
  29. ZOVIRAX [Concomitant]
     Active Substance: ACYCLOVIR
  30. VERSED [Concomitant]
     Active Substance: MIDAZOLAM HYDROCHLORIDE
  31. APRESOLINE HYDROCHLORIDE [Concomitant]
     Active Substance: HYDRALAZINE HYDROCHLORIDE
  32. CITROMA MAGNESIUM CITRATE [Concomitant]
     Active Substance: MAGNESIUM CITRATE
  33. CHRONULAC [Concomitant]
     Active Substance: LACTULOSE
  34. XANAX [Concomitant]
     Active Substance: ALPRAZOLAM
  35. KCL [Concomitant]
     Active Substance: POTASSIUM CHLORIDE
  36. LISINOPRIL (LISINOPRIL) [Concomitant]
     Active Substance: LISINOPRIL
  37. DUONEB [Concomitant]
     Active Substance: ALBUTEROL SULFATE\IPRATROPIUM BROMIDE
  38. COZAAR [Concomitant]
     Active Substance: LOSARTAN POTASSIUM
  39. ERY-TAB [Concomitant]
     Active Substance: ERYTHROMYCIN
  40. KLONOPIN [Concomitant]
     Active Substance: CLONAZEPAM
  41. PROTONIX [Concomitant]
     Active Substance: PANTOPRAZOLE SODIUM
  42. SODIUM PHOSPHATE [Concomitant]
     Active Substance: SODIUM PHOSPHATE
  43. CYCLOXAN [Concomitant]
     Active Substance: CYCLOPHOSPHAMIDE
  44. FENTANYL (FENTANYL) [Concomitant]
     Active Substance: FENTANYL
  45. LOPRESSOR [Concomitant]
     Active Substance: METOPROLOL TARTRATE
  46. NORCURON [Concomitant]
     Active Substance: VECURONIUM BROMIDE
  47. ISORDIL [Concomitant]
     Active Substance: ISOSORBIDE DINITRATE
  48. AQUAMEPHYTON [Concomitant]
     Active Substance: PHYTONADIONE
  49. CLINDAMYCIN [Concomitant]
     Active Substance: CLINDAMYCIN\CLINDAMYCIN PHOSPHATE
  50. KEPPRA [Suspect]
     Active Substance: LEVETIRACETAM
     Dosage: 1000 MG=2 TABLETS
     Route: 048
     Dates: start: 20110825, end: 20110904
  51. SEROQUEL [Suspect]
     Active Substance: QUETIAPINE FUMARATE
     Dosage: 12.5MG=0.5TABLET
     Route: 048
     Dates: start: 20110817, end: 20110818
  52. ATIVAN [Concomitant]
     Active Substance: LORAZEPAM
  53. DELTASONE [Concomitant]
     Active Substance: PREDNISONE
  54. TYLENOL [Concomitant]
     Active Substance: ACETAMINOPHEN
  55. PROCARDIA [Concomitant]
     Active Substance: NIFEDIPINE
  56. LASIX [Concomitant]
     Active Substance: FUROSEMIDE
  57. LORTAB [Concomitant]
     Active Substance: ACETAMINOPHEN\HYDROCODONE BITARTRATE
  58. DERMOPLAST (BENZETHONIUM\BENZOCAINE\MENTHOL) [Concomitant]
     Active Substance: BENZETHONIUM\BENZOCAINE\MENTHOL
  59. PRIVIGEN [Concomitant]
     Active Substance: HUMAN IMMUNOGLOBULIN G
  60. DILANTIN [Suspect]
     Active Substance: PHENYTOIN
     Indication: SEIZURE
     Dosage: 300MG=3CAPSULE;AT NIGHT
     Route: 048
     Dates: start: 20110713, end: 20110716
  61. DILANTIN [Suspect]
     Active Substance: PHENYTOIN
     Indication: SEIZURE
     Dosage: 100MG=2 ML
     Route: 042
     Dates: start: 20110718, end: 20110720
  62. DEPAKENE [Suspect]
     Active Substance: VALPROIC ACID
     Indication: SEIZURE
     Dosage: 4 ML
     Route: 048
     Dates: start: 20110720, end: 20110723
  63. SODIUM BICARBONATE. [Concomitant]
     Active Substance: SODIUM BICARBONATE
  64. AMPICILLIN (AMPICILLIN) [Concomitant]
     Active Substance: AMPICILLIN
  65. LEVOPHED [Concomitant]
     Active Substance: NOREPINEPHRINE BITARTRATE
  66. CEFTRIAXONE (CEFTRIAXONE) [Concomitant]
     Active Substance: CEFTRIAXONE
  67. CEREBYX [Concomitant]
     Active Substance: FOSPHENYTOIN SODIUM
  68. PLASBUMIN-5 [Concomitant]
     Active Substance: ALBUMIN (HUMAN)
  69. SENOKOT (DOCUSATE SODIUM, SENNOSIDE A PLUS B) [Concomitant]
     Active Substance: DOCUSATE SODIUM\SENNOSIDES A AND B
  70. POLYSPORIN [Concomitant]
     Active Substance: BACITRACIN ZINC\POLYMYXIN B SULFATE
  71. DEXTROSE (GLUCOSE) [Concomitant]
     Active Substance: DEXTROSE
  72. CELOXAN (CIPROFLOXACIN) [Concomitant]
     Active Substance: CIPROFLOXACIN

REACTIONS (7)
  - Tachycardia [None]
  - Ulcer [None]
  - Vomiting [None]
  - Stevens-Johnson syndrome [None]
  - Abdominal distension [None]
  - Unresponsive to stimuli [None]
  - Seizure [None]

NARRATIVE: CASE EVENT DATE: 20110712
